FAERS Safety Report 8474372-5 (Version None)
Quarter: 2012Q2

REPORT INFORMATION
  Report Type: 
  Country: None (occurrence: None)
  Receive Date: 20120628
  Receipt Date: 20120531
  Transmission Date: 20120825
  Serious: Yes (Other)
  Sender: FDA-Public Use
  Company Number: US-MYLANLABS-2011S1025933

PATIENT
  Age: 20 Year
  Sex: Male

DRUGS (6)
  1. CLOZAPINE [Suspect]
     Route: 048
     Dates: end: 20111220
  2. DEPAKOTE [Concomitant]
  3. CLOZAPINE [Suspect]
     Route: 048
     Dates: end: 20111220
  4. SYNTHROID [Concomitant]
  5. CLOZAPINE [Suspect]
     Route: 048
     Dates: end: 20111220
  6. GUANFACINE [Concomitant]

REACTIONS (1)
  - GRANULOCYTOPENIA [None]
